FAERS Safety Report 9977971 (Version 1)
Quarter: 2014Q1

REPORT INFORMATION
  Report Type: Report from Study
  Country: US (occurrence: US)
  Receive Date: 20140306
  Receipt Date: 20140306
  Transmission Date: 20141002
  Serious: No
  Sender: FDA-Public Use
  Company Number: US-ABBVIE-13P-163-1161974-00

PATIENT
  Age: 63 Year
  Sex: Female
  Weight: 82.63 kg

DRUGS (5)
  1. HUMIRA [Suspect]
     Indication: RHEUMATOID ARTHRITIS
     Route: 058
     Dates: start: 20130923
  2. PLAQUENIL [Concomitant]
     Indication: RHEUMATOID ARTHRITIS
  3. LEFLUNOMIDE [Concomitant]
     Indication: RHEUMATOID ARTHRITIS
  4. XANAX [Concomitant]
     Indication: ANXIETY
  5. VICODIN [Concomitant]
     Indication: ARTHRALGIA

REACTIONS (4)
  - Vein disorder [Recovered/Resolved]
  - Rash [Recovering/Resolving]
  - Pain in extremity [Recovered/Resolved]
  - Psoriasis [Recovering/Resolving]
